FAERS Safety Report 11320032 (Version 1)
Quarter: 2015Q3

REPORT INFORMATION
  Report Type: Spontaneous
  Country: US (occurrence: None)
  Receive Date: 20150728
  Receipt Date: 20150728
  Transmission Date: 20151125
  Serious: Yes (Other)
  Sender: FDA-Public Use
  Company Number: None

PATIENT
  Age: 56 Year
  Sex: Female
  Weight: 104.33 kg

DRUGS (18)
  1. ALEVE [Concomitant]
     Active Substance: NAPROXEN SODIUM
  2. CLINTAMYCIN [Concomitant]
  3. CINNAMON. [Concomitant]
     Active Substance: CINNAMON
  4. OMEPRAZOLE. [Concomitant]
     Active Substance: OMEPRAZOLE
  5. CRANBERRY. [Concomitant]
     Active Substance: CRANBERRY
  6. C-1000 [Concomitant]
  7. E-400 [Concomitant]
  8. VITAMIN B COMPLEX [Concomitant]
     Active Substance: CYANOCOBALAMIN\DEXPANTHENOL\NIACINAMIDE\PYRIDOXINE HYDROCHLORIDE\RIBOFLAVIN 5^-PHOSPHATE SODIUM\THIAMINE HYDROCHLORIDE\VITAMIN B COMPLEX
  9. METFORMIN [Suspect]
     Active Substance: METFORMIN HYDROCHLORIDE
     Indication: WEIGHT INCREASED
     Dosage: 1 PILL
     Route: 048
     Dates: start: 20150723, end: 20150727
  10. ONE-A-DAY NOS [Concomitant]
     Active Substance: MINERALS\VITAMINS
  11. FISH OIL [Concomitant]
     Active Substance: FISH OIL
  12. IRON [Concomitant]
     Active Substance: IRON
  13. METFORMIN [Concomitant]
     Active Substance: METFORMIN HYDROCHLORIDE
  14. LORATADINE. [Concomitant]
     Active Substance: LORATADINE
  15. METFORMIN [Suspect]
     Active Substance: METFORMIN HYDROCHLORIDE
     Indication: TYPE 2 DIABETES MELLITUS
     Dosage: 1 PILL
     Route: 048
     Dates: start: 20150723, end: 20150727
  16. IBUPROFEN. [Concomitant]
     Active Substance: IBUPROFEN
  17. MENOPAUSE RELIEF [Concomitant]
  18. VITAMINS D-3 [Concomitant]

REACTIONS (3)
  - Muscle spasms [None]
  - Weight increased [None]
  - Vaginal haemorrhage [None]

NARRATIVE: CASE EVENT DATE: 20150727
